FAERS Safety Report 18448346 (Version 2)
Quarter: 2020Q4

REPORT INFORMATION
  Report Type: Report from Study
  Country: JP (occurrence: JP)
  Receive Date: 20201030
  Receipt Date: 20201105
  Transmission Date: 20210114
  Serious: Yes (Life-Threatening, Hospitalization)
  Sender: FDA-Public Use
  Company Number: JP-GILEAD-2020-0496567

PATIENT
  Age: 71 Year
  Sex: Female
  Weight: 57 kg

DRUGS (55)
  1. OLMETEC [Suspect]
     Active Substance: OLMESARTAN MEDOXOMIL
     Indication: HYPERTENSION
     Dosage: 20 MG, QD
     Route: 048
     Dates: end: 20200805
  2. OLMETEC [Suspect]
     Active Substance: OLMESARTAN MEDOXOMIL
     Dosage: 20 MG, QD
     Route: 048
     Dates: start: 20200810, end: 20200817
  3. HEPARIN CALCIUM [Concomitant]
     Active Substance: HEPARIN CALCIUM
     Dosage: 5000 IU, BID
     Route: 058
     Dates: start: 20200806, end: 20200806
  4. DEXART [Concomitant]
     Active Substance: DEXAMETHASONE SODIUM PHOSPHATE
     Dosage: 6.6 MG, QD
     Route: 042
     Dates: start: 20200805, end: 20200809
  5. PROPOFOL. [Concomitant]
     Active Substance: PROPOFOL
     Dosage: 20 ML, QD
     Route: 042
     Dates: start: 20200806, end: 20200806
  6. PROPOFOL. [Concomitant]
     Active Substance: PROPOFOL
     Dosage: UNK
     Route: 041
     Dates: start: 20200806, end: 20200806
  7. FENTANYL. [Concomitant]
     Active Substance: FENTANYL
     Dosage: 10 ML, BID
     Route: 041
     Dates: start: 20200806, end: 20200806
  8. NORADRENALINE (NORPINEPHRINE) [Concomitant]
     Active Substance: NOREPINEPHRINE
     Dosage: 6 MG, TID
     Route: 041
     Dates: start: 20200807, end: 20200807
  9. LANSOPRAZOLE. [Concomitant]
     Active Substance: LANSOPRAZOLE
     Dosage: 15 MG, QD
     Route: 048
     Dates: start: 20200809, end: 20200817
  10. AMLODIN [Concomitant]
     Active Substance: AMLODIPINE BESYLATE
     Dosage: 5 MG, QD
     Route: 048
     Dates: start: 20200810, end: 20200817
  11. SENNOSIDE A [Concomitant]
     Active Substance: SENNOSIDE A
     Dosage: 36 MG, QD
     Route: 048
     Dates: start: 20200811, end: 20200817
  12. SP TROCHES [Concomitant]
     Active Substance: DEQUALINIUM CHLORIDE
     Dosage: 0.25 MG, PRN
     Route: 049
     Dates: start: 20200811
  13. REMDESIVIR. [Suspect]
     Active Substance: REMDESIVIR
     Indication: COVID-19
     Dosage: 200 MG, QD
     Route: 041
     Dates: start: 20200805, end: 20200805
  14. REMDESIVIR. [Suspect]
     Active Substance: REMDESIVIR
     Dosage: 100 MG, QD
     Route: 041
     Dates: start: 20200806, end: 20200809
  15. NICARDIPINE HYDROCHLORIDE. [Concomitant]
     Active Substance: NICARDIPINE HYDROCHLORIDE
     Dosage: 50 MG, QD
     Route: 041
     Dates: start: 20200807, end: 20200807
  16. HALCION [Concomitant]
     Active Substance: TRIAZOLAM
     Dosage: 0.25 MG, TID
     Dates: end: 20200805
  17. LIVALO [Concomitant]
     Active Substance: PITAVASTATIN CALCIUM
     Dosage: 1 MG, TID
     Dates: end: 20200805
  18. MAGNESIUM SULFATE. [Concomitant]
     Active Substance: MAGNESIUM SULFATE
     Dosage: 20 ML, QD
     Route: 041
     Dates: start: 20200807, end: 20200807
  19. KETALAR [Concomitant]
     Active Substance: KETAMINE HYDROCHLORIDE
     Dosage: 200 MG, QD
     Route: 042
     Dates: start: 20200806, end: 20200806
  20. NEO SYNESIN [Concomitant]
     Active Substance: PHENYLEPHRINE HYDROCHLORIDE
     Dosage: 1 MG, QD
     Route: 042
     Dates: start: 20200806, end: 20200806
  21. HEPARIN SODIUM. [Concomitant]
     Active Substance: HEPARIN SODIUM
     Dosage: 10000 IU, QD
     Route: 041
     Dates: start: 20200806, end: 20200806
  22. HEPARIN SODIUM. [Concomitant]
     Active Substance: HEPARIN SODIUM
     Dosage: 10000 IU, BID
     Route: 041
     Dates: start: 20200807, end: 20200810
  23. AMLODIN [Concomitant]
     Active Substance: AMLODIPINE BESYLATE
     Dosage: 2.5 MG, PRN
     Route: 048
     Dates: start: 20200809
  24. AMLODIN [Concomitant]
     Active Substance: AMLODIPINE BESYLATE
     Dosage: 2.5 MG, QD
     Route: 048
     Dates: start: 20200809, end: 20200809
  25. CALONAL [Concomitant]
     Active Substance: ACETAMINOPHEN
     Dosage: 500 MG, QID
     Route: 048
     Dates: start: 20200813, end: 20200818
  26. MUCOSTA [Concomitant]
     Active Substance: REBAMIPIDE
     Dosage: 100 MG, TID
     Dates: end: 20200805
  27. DEPAS [ETIZOLAM] [Concomitant]
     Active Substance: ETIZOLAM
     Dosage: 0.5 MG, TID
     Dates: end: 20200805
  28. PURSENNIDE [SENNOSIDE A+B] [Concomitant]
     Active Substance: SENNOSIDES A AND B
     Dosage: 36 MG, QD
     Dates: end: 20200805
  29. HEPARIN CALCIUM [Concomitant]
     Active Substance: HEPARIN CALCIUM
     Dosage: 5000 IU, QD
     Route: 058
     Dates: start: 20200805, end: 20200805
  30. MAGNESIUM SULFATE. [Concomitant]
     Active Substance: MAGNESIUM SULFATE
     Dosage: 20 ML, QD
     Route: 041
     Dates: start: 20200805, end: 20200805
  31. MAGMITT [Concomitant]
     Active Substance: MAGNESIUM OXIDE
     Dosage: 330 MG, TID
     Route: 050
     Dates: start: 20200807, end: 20200807
  32. MAGMITT [Concomitant]
     Active Substance: MAGNESIUM OXIDE
     Dosage: 330 MG, TID
     Route: 048
     Dates: start: 20200809, end: 20200810
  33. DECADRON [Concomitant]
     Active Substance: DEXAMETHASONE
     Dosage: 6 MG, QD
     Route: 048
     Dates: start: 20200810, end: 20200813
  34. SODIUM CHLORIDE. [Concomitant]
     Active Substance: SODIUM CHLORIDE
     Dosage: 1 G, TID
     Route: 048
     Dates: start: 20200817, end: 20200818
  35. AMLODINE [AMLODIPINE] [Concomitant]
     Dosage: 5 MG, QD
     Dates: end: 20200805
  36. LACTEC [Concomitant]
     Active Substance: CALCIUM CHLORIDE ANHYDROUS\POTASSIUM CHLORIDE\SODIUM CHLORIDE\SODIUM LACTATE
     Dosage: 1000 ML, TID
     Route: 041
     Dates: start: 20200805, end: 20200805
  37. LACTEC [Concomitant]
     Active Substance: CALCIUM CHLORIDE ANHYDROUS\POTASSIUM CHLORIDE\SODIUM CHLORIDE\SODIUM LACTATE
     Dosage: 1000 ML, BID
     Route: 041
     Dates: start: 20200806, end: 20200806
  38. KCL CORRECTIVE [Concomitant]
     Dosage: 100 ML, BID
     Route: 041
     Dates: start: 20200805, end: 20200806
  39. NORADRENALINE (NORPINEPHRINE) [Concomitant]
     Active Substance: NOREPINEPHRINE
     Dosage: 6 MG, BID
     Route: 041
     Dates: start: 20200806, end: 20200806
  40. NICARDIPINE HYDROCHLORIDE. [Concomitant]
     Active Substance: NICARDIPINE HYDROCHLORIDE
     Dosage: 50 MG, BID
     Route: 041
     Dates: start: 20200809, end: 20200809
  41. TAKEPRON [Concomitant]
     Active Substance: LANSOPRAZOLE
     Dosage: 15 MG, QD
     Dates: end: 20200805
  42. HEPARIN CALCIUM [Concomitant]
     Active Substance: HEPARIN CALCIUM
     Dosage: 5000 IU, BID
     Route: 058
     Dates: start: 20200810, end: 20200811
  43. ESLAX [Concomitant]
     Active Substance: ROCURONIUM BROMIDE
     Dosage: 50 MG, QD
     Route: 042
     Dates: start: 20200806, end: 20200806
  44. POTASSIUM CHLORIDE. [Concomitant]
     Active Substance: POTASSIUM CHLORIDE
     Dosage: 2 G, PRN
     Route: 048
     Dates: start: 20200818
  45. POTASSIUM CHLORIDE. [Concomitant]
     Active Substance: POTASSIUM CHLORIDE
     Dosage: 2 G, PRN
     Route: 048
     Dates: start: 20200807
  46. TRIAZOLAM. [Concomitant]
     Active Substance: TRIAZOLAM
     Dosage: 0.25 MG, QD
     Route: 048
     Dates: start: 20200811, end: 20200811
  47. SODIUM PICOSULFATE [Concomitant]
     Active Substance: SODIUM PICOSULFATE
     Dosage: 15 GTT DROPS, QD
     Route: 048
     Dates: start: 20200818
  48. MOHRUS [Concomitant]
     Active Substance: KETOPROFEN
     Dosage: 20 MG, QD
     Route: 050
     Dates: end: 20200805
  49. SODIUM PHOSPHATE [Concomitant]
     Active Substance: SODIUM PHOSPHATE
     Dosage: 20 ML, QD
     Route: 041
     Dates: start: 20200805, end: 20200805
  50. PROPOFOL. [Concomitant]
     Active Substance: PROPOFOL
     Dosage: 50 ML, TID
     Route: 041
     Dates: start: 20200807, end: 20200807
  51. ISOTONIC SODIUM CHLORIDE SOLUTION [Concomitant]
     Active Substance: SODIUM CHLORIDE
     Dosage: 250 ML, TID
     Route: 041
     Dates: start: 20200806, end: 20200810
  52. FENTANYL. [Concomitant]
     Active Substance: FENTANYL
     Dosage: 10 ML, QD
     Route: 041
     Dates: start: 20200807, end: 20200807
  53. HUMULIN R [Concomitant]
     Active Substance: INSULIN HUMAN
     Dosage: 50 IU, QD
     Route: 041
     Dates: start: 20200806, end: 20200808
  54. NICARDIPINE HYDROCHLORIDE. [Concomitant]
     Active Substance: NICARDIPINE HYDROCHLORIDE
     Dosage: UNK UNK, BID
     Route: 041
     Dates: start: 20200808, end: 20200808
  55. LANSOPRAZOLE. [Concomitant]
     Active Substance: LANSOPRAZOLE
     Dosage: 15 MG, QD
     Route: 048
     Dates: start: 20200806, end: 20200807

REACTIONS (1)
  - Laryngeal oedema [Recovered/Resolved]

NARRATIVE: CASE EVENT DATE: 20200818
